FAERS Safety Report 17468966 (Version 1)
Quarter: 2020Q1

REPORT INFORMATION
  Report Type: Report from Study
  Country: US (occurrence: US)
  Receive Date: 20200227
  Receipt Date: 20200227
  Transmission Date: 20200409
  Serious: No
  Sender: FDA-Public Use
  Company Number: US-AEGERION PHARMACEUTICAL, INC-AEGR004533

PATIENT
  Age: 71 Year
  Sex: Female

DRUGS (64)
  1. METRELEPTIN [Suspect]
     Active Substance: METRELEPTIN
     Dosage: 6.25 MG, QD
     Route: 058
     Dates: start: 20190401
  2. AMITRIPTYLINE [Concomitant]
     Active Substance: AMITRIPTYLINE
     Indication: ANXIETY
     Dosage: 25 MG, PRN
     Route: 048
     Dates: start: 20170109
  3. AMLODIPINE [Concomitant]
     Active Substance: AMLODIPINE BESYLATE
     Indication: HYPERTENSION
     Dosage: 5 MG, OD
     Route: 048
     Dates: start: 20161212, end: 20190623
  4. CALCIUM [Concomitant]
     Active Substance: CALCIUM
     Dosage: 600 MG, BID
     Route: 048
     Dates: start: 20190624
  5. ICOSAPENT ETHYL [Concomitant]
     Active Substance: ICOSAPENT ETHYL
     Indication: HYPERLIPIDAEMIA
     Dosage: 4 G, OD
     Route: 048
     Dates: start: 20160125, end: 20180812
  6. MELATONIN [Concomitant]
     Active Substance: MELATONIN
     Indication: SUPPLEMENTATION THERAPY
     Dosage: 1 DF, PRN
     Route: 048
     Dates: start: 20161011
  7. DOCUSATE SODIUM W/SENNOSIDE A+B [Concomitant]
     Active Substance: DOCUSATE SODIUM\SENNOSIDES A AND B
     Indication: CONSTIPATION
     Dosage: 1 DF, PRN
     Route: 048
     Dates: start: 20160218
  8. AMOXICILLIN. [Concomitant]
     Active Substance: AMOXICILLIN
     Indication: SINUSITIS
     Dosage: 875 MG, BID
     Route: 048
     Dates: start: 20180226, end: 20180304
  9. VASCEPA [Concomitant]
     Active Substance: ICOSAPENT ETHYL
     Indication: HYPERLIPIDAEMIA
     Dosage: 2 G, QD
     Route: 048
     Dates: start: 20180813
  10. KENALOG [Concomitant]
     Active Substance: TRIAMCINOLONE ACETONIDE
     Indication: MUSCULOSKELETAL PAIN
     Dosage: 40 MG, SINGLE
     Route: 014
     Dates: start: 20181029, end: 20181029
  11. PAXIL [Concomitant]
     Active Substance: PAROXETINE HYDROCHLORIDE
     Indication: ANXIETY
     Dosage: 30 MG, OD
     Route: 048
     Dates: start: 20190625
  12. AMLODIPINE [Concomitant]
     Active Substance: AMLODIPINE BESYLATE
     Dosage: 5 MG, BID
     Route: 048
     Dates: start: 20190624
  13. LEVEMIR [Concomitant]
     Active Substance: INSULIN DETEMIR
     Indication: TYPE 2 DIABETES MELLITUS
     Dosage: 25 UNITS, QD
     Route: 058
     Dates: start: 20170109
  14. MAGNESIUM OXIDE. [Concomitant]
     Active Substance: MAGNESIUM OXIDE
     Indication: SUPPLEMENTATION THERAPY
     Dosage: 250 MG, QD
     Route: 048
  15. CRESTOR [Concomitant]
     Active Substance: ROSUVASTATIN CALCIUM
     Indication: TYPE IIA HYPERLIPIDAEMIA
     Dosage: 5 MG, OD
     Route: 048
     Dates: start: 20110622, end: 20180812
  16. NOVOLOG [Concomitant]
     Active Substance: INSULIN ASPART
     Dosage: 15 UNITS, TID
     Route: 058
     Dates: start: 20170814
  17. METOPROLOL. [Concomitant]
     Active Substance: METOPROLOL
     Indication: HYPERTENSION
     Dosage: 50 MG, BID
     Route: 048
     Dates: start: 20151110
  18. LANSOPRAZOLE. [Concomitant]
     Active Substance: LANSOPRAZOLE
     Indication: GASTROOESOPHAGEAL REFLUX DISEASE
     Dosage: 30 MG, OD
     Route: 048
     Dates: start: 20170925
  19. PROTONIX [Concomitant]
     Active Substance: PANTOPRAZOLE SODIUM
     Indication: GASTROOESOPHAGEAL REFLUX DISEASE
     Dosage: 40 MG, OD
     Route: 048
     Dates: start: 20151110, end: 20170924
  20. BACLOFEN. [Concomitant]
     Active Substance: BACLOFEN
     Indication: FIBROMYALGIA
     Dosage: 20 MG, TID
     Route: 048
     Dates: start: 20170830, end: 20171026
  21. GABAPENTIN. [Concomitant]
     Active Substance: GABAPENTIN
     Dosage: 100 MG, BID
     Route: 048
     Dates: start: 20180126, end: 20180315
  22. DULCOLAX (BISACODYL) [Concomitant]
     Active Substance: BISACODYL
     Indication: CONSTIPATION
     Dosage: 5 MG, OD
     Route: 048
     Dates: start: 20180503
  23. FLUTICASONE. [Concomitant]
     Active Substance: FLUTICASONE
     Indication: SEASONAL ALLERGY
     Dosage: 2 DF, OD
     Route: 045
     Dates: start: 20180719, end: 20181024
  24. FLUTICASONE. [Concomitant]
     Active Substance: FLUTICASONE
     Indication: PARANASAL SINUS DISCOMFORT
     Dosage: 2 DF, PRN
     Route: 045
     Dates: start: 20190108
  25. VITAMIN D                          /00107901/ [Concomitant]
     Active Substance: ERGOCALCIFEROL
     Indication: SUPPLEMENTATION THERAPY
     Dosage: 1 DF, QW
     Route: 048
     Dates: start: 20160627
  26. LEVALBUTEROL                       /01419301/ [Concomitant]
     Active Substance: LEVALBUTEROL
     Dosage: 1.25 MG, TID
     Route: 045
     Dates: start: 20161115
  27. LEVOTHYROXINE. [Concomitant]
     Active Substance: LEVOTHYROXINE
     Indication: HYPOTHYROIDISM
     Dosage: 88 UG, OD
     Route: 048
     Dates: start: 20160421, end: 20180426
  28. LISINOPRIL. [Concomitant]
     Active Substance: LISINOPRIL
     Dosage: 20 MG, OD
     Route: 048
     Dates: start: 20190617
  29. SYNTHROID [Concomitant]
     Active Substance: LEVOTHYROXINE SODIUM
     Indication: HYPOTHYROIDISM
     Dosage: 100 UG, OD
     Route: 048
     Dates: start: 20180427
  30. BUPIVACAINE. [Concomitant]
     Active Substance: BUPIVACAINE
     Indication: MUSCULOSKELETAL PAIN
     Dosage: 4 ML, SINGLE
     Route: 014
     Dates: start: 20180905, end: 20180905
  31. NORCO [Concomitant]
     Active Substance: ACETAMINOPHEN\HYDROCODONE BITARTRATE
     Indication: FIBROMYALGIA
     Dosage: 1 DF, PRN
     Route: 048
     Dates: start: 20160218, end: 20180531
  32. JANUVIA [Concomitant]
     Active Substance: SITAGLIPTIN PHOSPHATE
     Indication: TYPE 2 DIABETES MELLITUS
     Dosage: 100 MG, OD
     Route: 048
     Dates: start: 20160615
  33. LISINOPRIL. [Concomitant]
     Active Substance: LISINOPRIL
     Indication: HYPERTENSION
     Dosage: 40 MG, OD
     Route: 048
     Dates: start: 20160125, end: 20190616
  34. MECLIZINE [Concomitant]
     Active Substance: MECLIZINE HYDROCHLORIDE
     Indication: VERTIGO
     Dosage: 25 MG, PRN
     Route: 048
     Dates: start: 20160626
  35. CRESTOR [Concomitant]
     Active Substance: ROSUVASTATIN CALCIUM
     Dosage: 40 MG, OD
     Dates: start: 20180813
  36. MYSOLINE [Concomitant]
     Active Substance: PRIMIDONE
     Indication: ESSENTIAL TREMOR
     Dosage: 50 MG, OD
     Route: 048
     Dates: start: 20180503, end: 20180620
  37. MYSOLINE [Concomitant]
     Active Substance: PRIMIDONE
     Dosage: 250 MG, OD
     Route: 048
     Dates: start: 20180621
  38. GABAPENTIN. [Concomitant]
     Active Substance: GABAPENTIN
     Dosage: 300 MG, TID
     Route: 048
     Dates: start: 20180621, end: 20181205
  39. PROPRANOLOL [Concomitant]
     Active Substance: PROPRANOLOL HYDROCHLORIDE
     Indication: ESSENTIAL TREMOR
     Dosage: 20 MG, BID
     Route: 048
     Dates: start: 20180413, end: 20180503
  40. LYRICA [Concomitant]
     Active Substance: PREGABALIN
     Indication: MUSCULOSKELETAL PAIN
     Dosage: 150 MG, BID
     Route: 048
     Dates: start: 20180910, end: 20181218
  41. METRELEPTIN [Suspect]
     Active Substance: METRELEPTIN
     Indication: LIPODYSTROPHY ACQUIRED
     Dosage: 5 MG, OD
     Route: 058
     Dates: start: 20170327, end: 20190331
  42. ASPIRIN                            /00002701/ [Concomitant]
     Active Substance: ASPIRIN
     Indication: CARDIOVASCULAR EVENT PROPHYLAXIS
     Dosage: 81 MG, OD
     Route: 048
  43. NORCO [Concomitant]
     Active Substance: ACETAMINOPHEN\HYDROCODONE BITARTRATE
     Indication: MUSCULOSKELETAL PAIN
     Dosage: 1 DF, PRN
     Route: 048
     Dates: start: 20180621, end: 20180805
  44. PAROXETINE. [Concomitant]
     Active Substance: PAROXETINE
     Indication: ANXIETY
     Dosage: 20 MG, OD
     Route: 048
     Dates: start: 20170210, end: 20190514
  45. NOVOLOG [Concomitant]
     Active Substance: INSULIN ASPART
     Indication: TYPE 2 DIABETES MELLITUS
     Dosage: 10 UNITS, UNK
     Route: 058
     Dates: start: 20160617, end: 20170813
  46. GABAPENTIN. [Concomitant]
     Active Substance: GABAPENTIN
     Indication: FIBROMYALGIA
     Dosage: 200 MG, BID
     Route: 048
     Dates: start: 20170608, end: 20170830
  47. METHYLPREDNISOLONE ACETATE. [Concomitant]
     Active Substance: METHYLPREDNISOLONE ACETATE
     Indication: MUSCULOSKELETAL PAIN
     Dosage: 40 MG, SINGLE
     Route: 014
     Dates: start: 20180905, end: 20180905
  48. BUSPIRONE [Concomitant]
     Active Substance: BUSPIRONE HYDROCHLORIDE
     Indication: ANXIETY
     Dosage: 10 MG, TID
     Route: 048
     Dates: start: 20181019
  49. LIDOCAINE. [Concomitant]
     Active Substance: LIDOCAINE
     Indication: SPINAL MYELOGRAM
     Dosage: 5 ML, SINGLE
     Route: 058
  50. CALCIUM [Concomitant]
     Active Substance: CALCIUM
     Indication: SUPPLEMENTATION THERAPY
     Dosage: 600 MG, OD
     Route: 048
     Dates: start: 20110624, end: 20190623
  51. CETIRIZINE [Concomitant]
     Active Substance: CETIRIZINE HYDROCHLORIDE
     Indication: SEASONAL ALLERGY
     Dosage: 10 MG, OD
     Route: 048
     Dates: start: 20160708, end: 20180315
  52. NORCO [Concomitant]
     Active Substance: ACETAMINOPHEN\HYDROCODONE BITARTRATE
     Dosage: 1 DF, PRN
     Route: 048
     Dates: start: 20180813
  53. NORCO [Concomitant]
     Active Substance: ACETAMINOPHEN\HYDROCODONE BITARTRATE
     Dosage: UNK
  54. LEVALBUTEROL                       /01419301/ [Concomitant]
     Active Substance: LEVALBUTEROL
     Indication: ASTHMA
     Dosage: 2 PUFF, PRN
     Route: 055
     Dates: start: 20161115
  55. COENZYME Q10 [Concomitant]
     Active Substance: UBIDECARENONE
     Indication: SUPPLEMENTATION THERAPY
     Dosage: 100 MG, QD
     Route: 048
     Dates: start: 20180213
  56. TRAMADOL. [Concomitant]
     Active Substance: TRAMADOL
     Indication: ARTHRALGIA
     Dosage: 50 MG, PRN
     Route: 048
     Dates: start: 20180806, end: 20180812
  57. VALTREX [Concomitant]
     Active Substance: VALACYCLOVIR HYDROCHLORIDE
     Indication: HERPES SIMPLEX
     Dosage: 500 MG, PRN
     Route: 048
     Dates: start: 20180525
  58. EZETIMIBE. [Concomitant]
     Active Substance: EZETIMIBE
     Indication: HYPERLIPIDAEMIA
     Dosage: 5 MG, QD
     Route: 048
     Dates: start: 20180213, end: 20180813
  59. PREDNISONE. [Concomitant]
     Active Substance: PREDNISONE
     Indication: SINUSITIS
     Dosage: 20 MG, BID
     Route: 048
     Dates: start: 20180302, end: 20180307
  60. PERCOCET [Concomitant]
     Active Substance: ACETAMINOPHEN\OXYCODONE HYDROCHLORIDE
     Indication: MUSCULOSKELETAL PAIN
     Dosage: 1 DF, PRN
     Route: 048
     Dates: start: 20180531, end: 20180620
  61. LYRICA [Concomitant]
     Active Substance: PREGABALIN
     Dosage: 50 MG, TID
     Route: 048
     Dates: start: 20181219
  62. ALLEGRA [Concomitant]
     Active Substance: FEXOFENADINE HYDROCHLORIDE
     Indication: SEASONAL ALLERGY
     Dosage: 180 MG, PRN
     Route: 048
     Dates: start: 20180316
  63. CYMBALTA [Concomitant]
     Active Substance: DULOXETINE HYDROCHLORIDE
     Indication: ANXIETY
     Dosage: 30 MG, QD
     Route: 048
     Dates: start: 20190515, end: 20190624
  64. MELOXICAM. [Concomitant]
     Active Substance: MELOXICAM
     Indication: FIBROMYALGIA
     Dosage: 7.5 MG, OD
     Route: 048
     Dates: start: 20190613

REACTIONS (2)
  - Haematuria [Not Recovered/Not Resolved]
  - Flank pain [Not Recovered/Not Resolved]

NARRATIVE: CASE EVENT DATE: 20190524
